FAERS Safety Report 9292796 (Version 1)
Quarter: 2013Q1

REPORT INFORMATION
  Report Type: Spontaneous
  Country: US (occurrence: None)
  Receive Date: 20121214
  Receipt Date: 20121214
  Transmission Date: 20140127
  Serious: Yes (Other)
  Sender: FDA-Public Use
  Company Number: 1205USA00185

PATIENT
  Age: 69 Year
  Sex: 0

DRUGS (15)
  1. JANUVIA [Suspect]
     Route: 048
     Dates: start: 20070911, end: 20120415
  2. LANTUS (INSULIN GLARGINE) [Concomitant]
  3. VICODIN (ACETAMINOPHEN (+) HYDROCODONE BITARTRATE) [Concomitant]
  4. POTASSIUM (UNSPECIFED) (POTASSIUM(UNSPECIFIED)) [Concomitant]
  5. PRILOSEC (OMEPRAZOLE)CAPSULE [Concomitant]
  6. ASAOL (MESALAMINE) [Concomitant]
  7. ATIVAN (LORAZEPAM) [Concomitant]
  8. VITAMIN D (UNSPECIFIED (VITAMIN D UNSPECIFIED) [Concomitant]
  9. PLAVIX (CLOPIDOGREL BITARTRATE) [Concomitant]
  10. HUMALOG (INSULIN LISPRO) [Concomitant]
  11. TIKOSYN (DOFETILIDE) [Concomitant]
  12. ADVAIR (FLUTICASONE PROPIONATE (+)SALMETEROL XINAFOATE) [Concomitant]
  13. CARVEDILOL (CARVEDILOL) [Concomitant]
  14. DIOVAN (VALSARTAN) [Concomitant]
  15. XOPENEX (LEVALBUTEROL HYDROCHLORIDE) [Concomitant]

REACTIONS (1)
  - Pancreatitis [None]
